FAERS Safety Report 7834132-2 (Version None)
Quarter: 2011Q4

REPORT INFORMATION
  Report Type: 
  Country: None (occurrence: None)
  Receive Date: 20111024
  Receipt Date: 20111011
  Transmission Date: 20120403
  Serious: Yes (Hospitalization, Other)
  Sender: FDA-Public Use
  Company Number: PHHY2011BR83711

PATIENT
  Age: 24 Year
  Sex: Female
  Weight: 52.2 kg

DRUGS (14)
  1. NIFEDIPINE [Concomitant]
     Dosage: 20 MG, BID
  2. CHLORTHALIDONE [Concomitant]
  3. OMEPRAZOLE [Concomitant]
  4. FUROSEMIDE [Concomitant]
     Dosage: 40 MG, BID
  5. METOPROLOL SUCCINATE [Concomitant]
  6. METFORMIN HCL [Suspect]
     Indication: DIABETES MELLITUS
     Dosage: 500 MG, QD
  7. RASILEZ [Suspect]
     Indication: PROTEINURIA
     Dates: start: 20090605
  8. ENALAPRIL MALEATE [Concomitant]
     Dosage: 20 MG, BID
  9. LOSARTAN POTASSIUM [Concomitant]
     Dosage: 50 MG, BID
  10. NPH INSULIN [Concomitant]
     Dosage: 20 IU, UNK
  11. SIMVASTATIN [Concomitant]
  12. CAPTOPRIL [Concomitant]
  13. AMLODIPINE [Concomitant]
  14. ALLOPURINOL [Concomitant]

REACTIONS (13)
  - MYOCARDIAL INFARCTION [None]
  - LUPUS NEPHRITIS [None]
  - BLOOD GLUCOSE INCREASED [None]
  - DIABETIC RETINOPATHY [None]
  - BLOOD CHOLESTEROL INCREASED [None]
  - BLOOD PRESSURE INCREASED [None]
  - BLOOD IRON INCREASED [None]
  - DIABETIC NEPHROPATHY [None]
  - BLOOD UREA INCREASED [None]
  - LOW DENSITY LIPOPROTEIN INCREASED [None]
  - OEDEMA PERIPHERAL [None]
  - BLOOD PHOSPHORUS INCREASED [None]
  - IGA NEPHROPATHY [None]
